FAERS Safety Report 16667183 (Version 3)
Quarter: 2020Q3

REPORT INFORMATION
  Report Type: Spontaneous
  Country: FR (occurrence: FR)
  Receive Date: 20190805
  Receipt Date: 20200707
  Transmission Date: 20201102
  Serious: Yes (Other)
  Sender: FDA-Public Use
  Company Number: FR-ROCHE-2322741

PATIENT
  Age: 17 Year
  Sex: Male

DRUGS (11)
  1. BROMAZEPAM [Suspect]
     Active Substance: BROMAZEPAM
     Indication: PRODUCT USED FOR UNKNOWN INDICATION
     Dosage: 8?20 PILLS
     Route: 048
     Dates: start: 1981
  2. MORPHINE SULFATE. [Suspect]
     Active Substance: MORPHINE SULFATE
     Route: 042
  3. ALCOHOL. [Suspect]
     Active Substance: ALCOHOL
     Indication: PRODUCT USED FOR UNKNOWN INDICATION
     Dosage: 22 UA
     Route: 048
  4. AMPHETAMINE [Suspect]
     Active Substance: AMPHETAMINE
     Indication: PRODUCT USED FOR UNKNOWN INDICATION
     Route: 045
     Dates: start: 1981, end: 2001
  5. MORPHINE SULFATE. [Suspect]
     Active Substance: MORPHINE SULFATE
     Indication: PRODUCT USED FOR UNKNOWN INDICATION
     Route: 045
  6. BUPRENORPHINE. [Suspect]
     Active Substance: BUPRENORPHINE
     Indication: PRODUCT USED FOR UNKNOWN INDICATION
     Route: 065
  7. COCAINE [Suspect]
     Active Substance: COCAINE
     Dosage: DOSE: 3?1 TO 2 G
     Route: 042
  8. HEROIN [Suspect]
     Active Substance: DIAMORPHINE
     Indication: PRODUCT USED FOR UNKNOWN INDICATION
     Route: 045
  9. COCAINE [Suspect]
     Active Substance: COCAINE
     Dosage: DOSE: 3?1 TO 2 G
     Route: 045
  10. CLONAZEPAM. [Suspect]
     Active Substance: CLONAZEPAM
     Indication: PRODUCT USED FOR UNKNOWN INDICATION
     Route: 065
  11. COCAINE [Suspect]
     Active Substance: COCAINE
     Indication: PRODUCT USED FOR UNKNOWN INDICATION
     Route: 065
     Dates: start: 1981

REACTIONS (3)
  - Nasal septum deviation [Unknown]
  - Cluster headache [Not Recovered/Not Resolved]
  - Drug abuse [Unknown]

NARRATIVE: CASE EVENT DATE: 1981
